FAERS Safety Report 6193086-8 (Version None)
Quarter: 2009Q2

REPORT INFORMATION
  Report Type: 
  Country: None (occurrence: None)
  Receive Date: 20090518
  Receipt Date: 20090512
  Transmission Date: 20091009
  Serious: Yes (Other)
  Sender: FDA-Public Use
  Company Number: GB-TEVA-183468ISR

PATIENT
  Age: 40 Year
  Sex: Female
  Weight: 52 kg

DRUGS (1)
  1. METFORMIN HCL [Suspect]
     Indication: GESTATIONAL DIABETES
     Route: 064
     Dates: start: 20080917, end: 20081113

REACTIONS (3)
  - FOETAL GROWTH RETARDATION [None]
  - OESOPHAGEAL ATRESIA [None]
  - TRACHEO-OESOPHAGEAL FISTULA [None]
